FAERS Safety Report 14112201 (Version 2)
Quarter: 2017Q4

REPORT INFORMATION
  Report Type: Report from Study
  Country: US (occurrence: US)
  Receive Date: 20171020
  Receipt Date: 20171026
  Transmission Date: 20180321
  Serious: No
  Sender: FDA-Public Use
  Company Number: US-ALEXION PHARMACEUTICALS INC.-A201711356

PATIENT
  Age: 2 Year
  Sex: Female
  Weight: 10.5 kg

DRUGS (5)
  1. SOLIRIS [Suspect]
     Active Substance: ECULIZUMAB
     Indication: HAEMOLYTIC URAEMIC SYNDROME
     Dosage: 300 MG, Q2W
     Route: 065
     Dates: start: 20160512
  2. PENICILLIN V POTASSIUM. [Concomitant]
     Active Substance: PENICILLIN V POTASSIUM
     Dosage: UNK
  3. PENICILLIN V POTASSIUM. [Concomitant]
     Active Substance: PENICILLIN V POTASSIUM
     Indication: ANTIBIOTIC PROPHYLAXIS
     Dosage: 2.5 ML, BID
     Route: 048
  4. EMLA [Concomitant]
     Active Substance: LIDOCAINE\PRILOCAINE
     Indication: PRODUCT USED FOR UNKNOWN INDICATION
     Dosage: 1 APPLICATION AS NEEDED TO PORT SITE
     Route: 061
  5. MYCOSTATIN [Concomitant]
     Active Substance: NYSTATIN
     Indication: PRODUCT USED FOR UNKNOWN INDICATION
     Dosage: 1 APPLICATION TO SKIN, BID
     Route: 061

REACTIONS (10)
  - Blood phosphorus decreased [Unknown]
  - Specific gravity urine decreased [Unknown]
  - Blood urea decreased [Recovered/Resolved]
  - Haptoglobin decreased [Recovered/Resolved]
  - Haematocrit decreased [Unknown]
  - Anion gap increased [Unknown]
  - Blood glucose increased [Unknown]
  - Aspartate aminotransferase increased [Recovered/Resolved]
  - Haemoglobin decreased [Recovered/Resolved]
  - Urine protein/creatinine ratio increased [Unknown]

NARRATIVE: CASE EVENT DATE: 20160526
